FAERS Safety Report 14410685 (Version 8)
Quarter: 2019Q4

REPORT INFORMATION
  Report Type: Report from Study
  Country: CA (occurrence: CA)
  Receive Date: 20180119
  Receipt Date: 20191118
  Transmission Date: 20200122
  Serious: Yes (Other)
  Sender: FDA-Public Use
  Company Number: CA-BRISTOL-MYERS SQUIBB COMPANY-BMS-2017-027449

PATIENT
  Age: 75 Year
  Sex: Female

DRUGS (3)
  1. ABATACEPT [Suspect]
     Active Substance: ABATACEPT
     Indication: PRODUCT USED FOR UNKNOWN INDICATION
     Dosage: 1000 MG, Q4WK
     Route: 042
     Dates: start: 20180726
  2. ABATACEPT [Suspect]
     Active Substance: ABATACEPT
     Indication: RHEUMATOID ARTHRITIS
     Dosage: 1000 MG, Q4WK
     Route: 042
     Dates: start: 20130812
  3. ABATACEPT [Suspect]
     Active Substance: ABATACEPT
     Indication: PRODUCT USED FOR UNKNOWN INDICATION
     Dosage: 1000 MILLIGRAM, Q4WK
     Route: 042
     Dates: end: 20191008

REACTIONS (19)
  - Cough [Recovered/Resolved]
  - Pain in jaw [Recovered/Resolved]
  - Dyspnoea [Unknown]
  - Vision blurred [Unknown]
  - Oedema peripheral [Unknown]
  - Productive cough [Unknown]
  - Respiratory tract infection [Recovering/Resolving]
  - Cyanosis [Unknown]
  - Product dose omission [Unknown]
  - Wound infection fungal [Unknown]
  - Skin lesion [Recovering/Resolving]
  - Rales [Unknown]
  - Urinary tract infection [Unknown]
  - Skin cancer [Unknown]
  - Blood pressure decreased [Recovered/Resolved]
  - Wheezing [Unknown]
  - Rash [Recovering/Resolving]
  - Hypotension [Unknown]
  - Influenza [Unknown]

NARRATIVE: CASE EVENT DATE: 20170704
